FAERS Safety Report 8465094-5 (Version None)
Quarter: 2012Q2

REPORT INFORMATION
  Report Type: 
  Country: None (occurrence: None)
  Receive Date: 20120619
  Receipt Date: 20120606
  Transmission Date: 20120825
  Serious: Yes (Other)
  Sender: FDA-Public Use
  Company Number: US-2012-10746

PATIENT
  Age: 23 Year
  Sex: Female

DRUGS (3)
  1. CYCLOPHOSPHAMIDE [Concomitant]
  2. DAUNORUBICIN HYDROCHLORIDE [Concomitant]
  3. BUSULFAN [Suspect]
     Indication: STEM CELL TRANSPLANT
     Dosage: 16 MG/KG, UNK, UNKNOWN

REACTIONS (5)
  - KARYOTYPE ANALYSIS ABNORMAL [None]
  - PRIMARY HYPOGONADISM [None]
  - AMENORRHOEA [None]
  - MATERNAL EXPOSURE BEFORE PREGNANCY [None]
  - ABORTED PREGNANCY [None]
